FAERS Safety Report 7687250-6 (Version None)
Quarter: 2011Q3

REPORT INFORMATION
  Report Type: 
  Country: None (occurrence: None)
  Receive Date: 20110816
  Receipt Date: 20110810
  Transmission Date: 20111222
  Serious: Yes (Other)
  Sender: FDA-Public Use
  Company Number: CA-ALLERGAN-1110870US

PATIENT
  Age: 5 Year
  Sex: Male
  Weight: 19 kg

DRUGS (6)
  1. CLOBAZAM [Concomitant]
  2. DOMPERIDONE [Concomitant]
  3. BOTULINUM TOXIN TYPE A [Suspect]
     Indication: PRODUCT USED FOR UNKNOWN INDICATION
     Dosage: 200 UNITS, SINGLE
     Route: 030
  4. PHENOBARBITAL TAB [Concomitant]
  5. ZANTAC [Concomitant]
  6. GLYCOPYRROLATE [Concomitant]

REACTIONS (2)
  - MOBILITY DECREASED [None]
  - MUSCULAR WEAKNESS [None]
